FAERS Safety Report 6893717-0 (Version None)
Quarter: 2010Q3

REPORT INFORMATION
  Report Type: 
  Country: None (occurrence: None)
  Receive Date: 20100801
  Receipt Date: 20100720
  Transmission Date: 20110219
  Serious: Yes (Other)
  Sender: FDA-Public Use
  Company Number: JP-BRISTOL-MYERS SQUIBB COMPANY-15216856

PATIENT
  Age: 42 Year
  Sex: Female

DRUGS (23)
  1. METGLUCO [Suspect]
     Indication: TYPE 2 DIABETES MELLITUS
     Route: 048
     Dates: start: 20100701, end: 20100701
  2. RISPERDAL [Concomitant]
  3. SEIBULE [Concomitant]
  4. DIOVAN [Concomitant]
     Route: 048
  5. ZETIA [Concomitant]
     Route: 048
  6. MYSLEE [Concomitant]
     Route: 048
  7. DEPAKENE [Concomitant]
     Route: 048
  8. LUVOX [Concomitant]
     Route: 048
  9. HIRUDOID [Concomitant]
     Dosage: EXTERNAL USE
  10. PREDNISOLONE [Concomitant]
  11. POVIDONE IODINE [Concomitant]
  12. DOMIPHEN BROMIDE [Concomitant]
     Route: 048
  13. SINGULAIR [Concomitant]
     Route: 048
  14. NEOMALLERMIN-TR [Concomitant]
     Route: 048
  15. LACB [Concomitant]
     Route: 048
  16. DEPAS [Concomitant]
     Route: 048
  17. HOKUNALIN [Concomitant]
  18. MEPTIN [Concomitant]
  19. THEOLONG [Concomitant]
     Route: 048
  20. SALMETEROL XINAFOATE [Concomitant]
     Route: 055
  21. KINEDAK [Concomitant]
     Route: 048
  22. GABAPEN [Concomitant]
     Route: 048
  23. TEGRETOL [Concomitant]
     Route: 048

REACTIONS (1)
  - CHOKING SENSATION [None]
